FAERS Safety Report 10684017 (Version 1)
Quarter: 2014Q4

REPORT INFORMATION
  Report Type: Spontaneous
  Country: US (occurrence: US)
  Receive Date: 20141230
  Receipt Date: 20141230
  Transmission Date: 20150529
  Serious: No
  Sender: FDA-Public Use
  Company Number: US-009507513-1412USA004592

PATIENT
  Age: 35 Year
  Sex: Female

DRUGS (2)
  1. NUVARING [Suspect]
     Active Substance: ETHINYL ESTRADIOL\ETONOGESTREL
     Indication: CONTRACEPTION
     Dosage: 1 RING/3 WEEKS
     Route: 067
     Dates: start: 20141204, end: 20141207
  2. NUVARING [Suspect]
     Active Substance: ETHINYL ESTRADIOL\ETONOGESTREL
     Dosage: 1 RING/3 WEEKS
     Route: 067
     Dates: start: 20141207

REACTIONS (3)
  - Device expulsion [Recovered/Resolved]
  - Medical device discomfort [Unknown]
  - Device breakage [Unknown]

NARRATIVE: CASE EVENT DATE: 20141207
